FAERS Safety Report 8914426 (Version 4)
Quarter: 2013Q1

REPORT INFORMATION
  Report Type: Report from Study
  Country: CA (occurrence: CA)
  Receive Date: 20121116
  Receipt Date: 20130116
  Transmission Date: 20140127
  Serious: Yes (Other)
  Sender: FDA-Public Use
  Company Number: CA-AMGEN-CANNI2012073409

PATIENT
  Age: 58 Year
  Sex: Female

DRUGS (7)
  1. ROMIPLOSTIM [Suspect]
     Indication: IDIOPATHIC THROMBOCYTOPENIC PURPURA
     Dosage: 9 MUG/KG, QWK
     Route: 058
     Dates: start: 20101013
  2. IBUPROFEN [Concomitant]
     Dosage: 400 MG, PRN
     Route: 048
  3. NAPROXEN [Concomitant]
     Dosage: 220 MG, PRN
     Route: 048
  4. VOLTAREN [Concomitant]
     Dosage: UNK UNK, PRN
     Route: 061
  5. REACTINE [Concomitant]
     Dosage: 200 MG, PRN
     Route: 048
  6. ATARAX [Concomitant]
     Dosage: UNK UNK, PRN
     Route: 048
  7. TYLENOL [Concomitant]

REACTIONS (1)
  - Exostosis [Not Recovered/Not Resolved]
